FAERS Safety Report 8546790-8 (Version None)
Quarter: 2012Q3

REPORT INFORMATION
  Report Type: 
  Country: None (occurrence: None)
  Receive Date: 20120727
  Receipt Date: 20120209
  Transmission Date: 20120928
  Serious: No
  Sender: FDA-Public Use
  Company Number: US-ASTRAZENECA-2012SE08510

PATIENT
  Age: 41 Year
  Sex: Female
  Weight: 72.6 kg

DRUGS (11)
  1. SEROQUEL [Suspect]
     Indication: ANXIETY
     Dosage: 50 MILLIGRAMS IN THE MORNING AND 75 MILLIGRAMS AT EVENING
     Route: 048
     Dates: start: 20040101
  2. SEROQUEL [Suspect]
     Route: 048
  3. LAMICTAL [Concomitant]
  4. SEROQUEL [Suspect]
     Route: 048
  5. SEROQUEL [Suspect]
     Route: 048
  6. SEROQUEL [Suspect]
     Indication: DEPRESSION
     Dosage: 50 MILLIGRAMS IN THE MORNING AND 75 MILLIGRAMS AT EVENING
     Route: 048
     Dates: start: 20040101
  7. SEROQUEL [Suspect]
     Route: 048
  8. SEROQUEL [Suspect]
     Route: 048
  9. SEROQUEL [Suspect]
     Indication: MAJOR DEPRESSION
     Dosage: 50 MILLIGRAMS IN THE MORNING AND 75 MILLIGRAMS AT EVENING
     Route: 048
     Dates: start: 20040101
  10. SEROQUEL [Suspect]
     Indication: INSOMNIA
     Dosage: 50 MILLIGRAMS IN THE MORNING AND 75 MILLIGRAMS AT EVENING
     Route: 048
     Dates: start: 20040101
  11. SEROQUEL [Suspect]
     Indication: AFFECTIVE DISORDER
     Dosage: 50 MILLIGRAMS IN THE MORNING AND 75 MILLIGRAMS AT EVENING
     Route: 048
     Dates: start: 20040101

REACTIONS (7)
  - THERAPEUTIC RESPONSE UNEXPECTED [None]
  - STRESS [None]
  - OFF LABEL USE [None]
  - MENTAL DISORDER [None]
  - NEGATIVE THOUGHTS [None]
  - ANXIETY [None]
  - DRUG DOSE OMISSION [None]
